FAERS Safety Report 9257119 (Version 2)
Quarter: 2013Q2

REPORT INFORMATION
  Report Type: Spontaneous
  Country: BR (occurrence: None)
  Receive Date: 20130423
  Receipt Date: 20130514
  Transmission Date: 20140414
  Serious: Yes (Hospitalization)
  Sender: FDA-Public Use
  Company Number: AUR-APL-2013-03279

PATIENT
  Age: 56 Year
  Sex: Female
  Weight: 54 kg

DRUGS (3)
  1. SERTRALINE [Suspect]
     Indication: DEPRESSION
     Route: 048
     Dates: start: 20130403, end: 20130403
  2. PROPANOLOL (PROPANOLOL) [Concomitant]
  3. OMEPRAZOLE (OMEPRAZOLE) [Concomitant]

REACTIONS (3)
  - Skin burning sensation [None]
  - Hypersensitivity [None]
  - Dysentery [None]
